FAERS Safety Report 10405219 (Version 1)
Quarter: 2014Q3

REPORT INFORMATION
  Report Type: Report from Study
  Country: MX (occurrence: MX)
  Receive Date: 20140825
  Receipt Date: 20140825
  Transmission Date: 20150326
  Serious: Yes (Death, Hospitalization, Other)
  Sender: FDA-Public Use
  Company Number: PHHY2014MX104020

PATIENT
  Age: 85 Year
  Sex: Female

DRUGS (3)
  1. MORPHINE [Concomitant]
     Active Substance: MORPHINE
     Dosage: UNK UKN, UNK
  2. ZOMETA [Suspect]
     Active Substance: ZOLEDRONIC ACID
     Indication: BONE CANCER
     Dosage: 1 (4 MG/5ML) MONTHLY
     Route: 042
     Dates: start: 201309
  3. LYRICA [Concomitant]
     Active Substance: PREGABALIN
     Dosage: UNK UKN, UNK

REACTIONS (4)
  - Blood glucose increased [Unknown]
  - Fall [Recovered/Resolved]
  - Bone cancer [Fatal]
  - Hip fracture [Unknown]
